FAERS Safety Report 17351415 (Version 4)
Quarter: 2020Q1

REPORT INFORMATION
  Report Type: Spontaneous
  Country: US (occurrence: US)
  Receive Date: 20200130
  Receipt Date: 20200326
  Transmission Date: 20200409
  Serious: Yes (Hospitalization)
  Sender: FDA-Public Use
  Company Number: US-VIFOR (INTERNATIONAL) INC.-VIT-2020-01538

PATIENT
  Age: 75 Year
  Sex: Male

DRUGS (17)
  1. VELTASSA [Suspect]
     Active Substance: PATIROMER
     Route: 048
     Dates: start: 20200204
  2. FUROSEMIDE. [Concomitant]
     Active Substance: FUROSEMIDE
  3. NOVOLOG [Concomitant]
     Active Substance: INSULIN ASPART
  4. VELTASSA [Suspect]
     Active Substance: PATIROMER
     Indication: HYPERKALAEMIA
     Route: 048
     Dates: start: 20191220
  5. GABAPENTIN. [Concomitant]
     Active Substance: GABAPENTIN
  6. LABETALOL [Concomitant]
     Active Substance: LABETALOL\LABETALOL HYDROCHLORIDE
  7. RETACRIT [Concomitant]
     Active Substance: EPOETIN ALFA-EPBX
  8. FERROUS SULFATE. [Concomitant]
     Active Substance: FERROUS SULFATE
  9. LOSARTAN. [Concomitant]
     Active Substance: LOSARTAN
  10. LOVASTATIN. [Concomitant]
     Active Substance: LOVASTATIN
  11. CALCITRIOL. [Concomitant]
     Active Substance: CALCITRIOL
  12. PANTAPRAZOLE [Concomitant]
     Active Substance: PANTOPRAZOLE SODIUM
  13. VELTASSA [Suspect]
     Active Substance: PATIROMER
     Route: 048
     Dates: start: 2020
  14. TAMSULOSIN [Concomitant]
     Active Substance: TAMSULOSIN
  15. HYDRALAZINE [Concomitant]
     Active Substance: HYDRALAZINE HYDROCHLORIDE
  16. VITAMIN D [Concomitant]
     Active Substance: VITAMIN D NOS
  17. CITALOPRAM [Concomitant]
     Active Substance: CITALOPRAM HYDROBROMIDE

REACTIONS (2)
  - Off label use [Unknown]
  - Sepsis [Not Recovered/Not Resolved]

NARRATIVE: CASE EVENT DATE: 2020
